FAERS Safety Report 7478837-4 (Version None)
Quarter: 2011Q2

REPORT INFORMATION
  Report Type: 
  Country: None (occurrence: None)
  Receive Date: 20110513
  Receipt Date: 20110505
  Transmission Date: 20111010
  Serious: Yes (Other)
  Sender: FDA-Public Use
  Company Number: BR-BAYER-2011-039211

PATIENT
  Age: 42 Year
  Sex: Female

DRUGS (6)
  1. SCAFLAN [Concomitant]
     Indication: DERMATITIS
     Dosage: 1 DF, QD
     Route: 061
     Dates: start: 20110427
  2. MUCOLARE [Concomitant]
     Indication: DERMATITIS
     Dosage: 1 DF, QD
     Route: 048
     Dates: start: 20110426
  3. ALGINAC [Concomitant]
     Indication: DERMATITIS
     Dosage: 1 DF, BID
     Route: 048
     Dates: start: 20110301
  4. DIPYRONE [Concomitant]
     Indication: PROPHYLAXIS
     Dosage: 2 DF, QOD
     Route: 048
     Dates: start: 20110101
  5. INTERFERON BETA-1B [Suspect]
     Indication: MULTIPLE SCLEROSIS
     Dosage: 9.6 MIU, QOD
     Route: 058
     Dates: start: 20110101
  6. DIPROSPAN [Concomitant]
     Indication: DERMATITIS
     Dosage: 1 DF, ONCE
     Route: 030
     Dates: start: 20110401, end: 20110401

REACTIONS (8)
  - PYREXIA [None]
  - VOMITING [None]
  - FEELING COLD [None]
  - ARTHRALGIA [None]
  - PAIN [None]
  - FALL [None]
  - INCOHERENT [None]
  - DELIRIUM [None]
